FAERS Safety Report 8482036-7 (Version None)
Quarter: 2012Q3

REPORT INFORMATION
  Report Type: 
  Country: None (occurrence: None)
  Receive Date: 20120702
  Receipt Date: 20120627
  Transmission Date: 20120928
  Serious: Yes (Other)
  Sender: FDA-Public Use
  Company Number: PHEH2012US012887

PATIENT
  Sex: Female
  Weight: 72.562 kg

DRUGS (5)
  1. TOPAMAX [Concomitant]
     Dosage: 50 MG, UNK
     Route: 048
  2. BACLOFEN [Concomitant]
     Dosage: 20 MG, UNK
     Route: 048
  3. ATIVAN [Concomitant]
     Dosage: 1 MG, UNK
     Route: 048
  4. GILENYA [Suspect]
     Dosage: 0.5 MG, QD
     Route: 048
  5. CYMBALTA [Concomitant]
     Dosage: 20 MG, UNK
     Route: 048

REACTIONS (1)
  - BUNDLE BRANCH BLOCK [None]
